FAERS Safety Report 10362140 (Version 1)
Quarter: 2014Q1

REPORT INFORMATION
  Report Type: Spontaneous
  Country: US (occurrence: None)
  Receive Date: 20140306
  Receipt Date: 20140306
  Transmission Date: 20141002
  Serious: Yes (Hospitalization, Other)
  Sender: FDA-Public Use
  Company Number: 163-21880-13043707

PATIENT
  Age: 80 Year
  Sex: Male
  Weight: 81.2 kg

DRUGS (3)
  1. REVLIMID (LENALIDOMIDE) (25 MILLIGRAM, CAPSULES) [Suspect]
     Indication: PLASMA CELL MYELOMA
     Dosage: 25 MG, 21 IN 28 D, PO
     Route: 048
     Dates: start: 20120907
  2. VELCADE (BORTEZOMIB) (UNKNOWN) [Concomitant]
  3. DEXAMETHASONE (DEXAMETHASONE) (TABLETS) [Concomitant]

REACTIONS (2)
  - Gastrointestinal haemorrhage [None]
  - Pulmonary embolism [None]
